FAERS Safety Report 9951183 (Version 2)
Quarter: 2014Q2

REPORT INFORMATION
  Report Type: Spontaneous
  Country: US (occurrence: US)
  Receive Date: 20140304
  Receipt Date: 20140402
  Transmission Date: 20141212
  Serious: Yes (Other)
  Sender: FDA-Public Use
  Company Number: GXBR2014US000784

PATIENT
  Sex: Female
  Weight: 69.84 kg

DRUGS (2)
  1. ZONALON [Suspect]
     Indication: VULVOVAGINAL PRURITUS
     Dosage: 1 DF, QID
     Route: 061
     Dates: start: 2007
  2. VICTOZA [Concomitant]
     Dosage: UNK DF, QD

REACTIONS (4)
  - Syncope [Unknown]
  - Nausea [Unknown]
  - Nasopharyngitis [Unknown]
  - Eye pruritus [Unknown]
